FAERS Safety Report 5726045-7 (Version None)
Quarter: 2008Q2

REPORT INFORMATION
  Report Type: 
  Country: None (occurrence: None)
  Receive Date: 20080501
  Receipt Date: 20080501
  Transmission Date: 20081010
  Serious: Yes (Other)
  Sender: FDA-Public Use
  Company Number: None

PATIENT
  Sex: Female

DRUGS (7)
  1. REVLIMID [Suspect]
     Indication: MULTIPLE MYELOMA
     Dosage: 15MG DAILY 21D/28D PO
     Route: 048
  2. DEXAMETHASONE [Concomitant]
  3. PENICILLIN [Concomitant]
  4. COMPAZINE [Concomitant]
  5. WARFARIN SODIUM [Concomitant]
  6. VICODIN [Concomitant]
  7. PRO-AIR [Concomitant]

REACTIONS (2)
  - RENAL IMPAIRMENT [None]
  - THROMBOCYTOPENIA [None]
